FAERS Safety Report 5694429-1 (Version None)
Quarter: 2008Q2

REPORT INFORMATION
  Report Type: 
  Country: None (occurrence: None)
  Receive Date: 20080404
  Receipt Date: 20080401
  Transmission Date: 20081010
  Serious: Yes (Hospitalization)
  Sender: FDA-Public Use
  Company Number: FR-BRISTOL-MYERS SQUIBB COMPANY-14134076

PATIENT
  Age: 75 Year
  Sex: Male

DRUGS (1)
  1. HYDREA [Suspect]
     Indication: THROMBOCYTOPENIA
     Dosage: INITIATED DEC07,3/D;DECREASED TO 1/D,JAN08;RESTARTED:08JAN08,1/D;WITHDRAWN ON 27FEB08.
     Dates: start: 20071201, end: 20080227

REACTIONS (3)
  - CHILLS [None]
  - GENERAL PHYSICAL HEALTH DETERIORATION [None]
  - PYREXIA [None]
